FAERS Safety Report 20054134 (Version 2)
Quarter: 2021Q4

REPORT INFORMATION
  Report Type: Spontaneous
  Country: US (occurrence: US)
  Receive Date: 20211110
  Receipt Date: 20211201
  Transmission Date: 20220303
  Serious: No
  Sender: FDA-Public Use
  Company Number: US-PFIZER INC-202101162051

PATIENT
  Age: 78 Year
  Sex: Female

DRUGS (4)
  1. IBRANCE [Suspect]
     Active Substance: PALBOCICLIB
     Dosage: 100 MG
     Dates: start: 20210826
  2. IBRANCE [Suspect]
     Active Substance: PALBOCICLIB
     Dosage: 100 MG
     Dates: start: 20210829
  3. IBRANCE [Suspect]
     Active Substance: PALBOCICLIB
     Dosage: 100 MG, CYCLIC (3 WEEK CYCLE NOW SHE IS ON THE 7 DAY OFF CYCLE)
     Dates: start: 20210831
  4. IBRANCE [Suspect]
     Active Substance: PALBOCICLIB
     Dosage: 100 MG
     Dates: start: 20210901

REACTIONS (9)
  - Product dose omission issue [Unknown]
  - Dyspnoea [Recovered/Resolved]
  - Abdominal discomfort [Unknown]
  - Nausea [Recovered/Resolved]
  - Stomatitis [Recovered/Resolved]
  - Diarrhoea [Recovering/Resolving]
  - Fatigue [Unknown]
  - Headache [Unknown]
  - Hypersomnia [Unknown]

NARRATIVE: CASE EVENT DATE: 20210101
